FAERS Safety Report 16474228 (Version 1)
Quarter: 2019Q2

REPORT INFORMATION
  Report Type: Spontaneous
  Country: US (occurrence: US)
  Receive Date: 20190625
  Receipt Date: 20190625
  Transmission Date: 20190711
  Serious: Yes (Life-Threatening, Hospitalization)
  Sender: FDA-Public Use
  Company Number: None

PATIENT
  Age: 20 Year
  Sex: Male
  Weight: 58.06 kg

DRUGS (3)
  1. KRATOM [Suspect]
     Active Substance: HERBALS\MITRAGYNINE
     Indication: FEELING OF RELAXATION
  2. KRATOM [Suspect]
     Active Substance: HERBALS\MITRAGYNINE
     Indication: DISTURBANCE IN ATTENTION
     Dosage: ?          QUANTITY:10 DF DOSAGE FORM;?
     Route: 048
  3. KRATOM [Suspect]
     Active Substance: HERBALS\MITRAGYNINE
     Indication: INSOMNIA

REACTIONS (6)
  - Vitamin D decreased [None]
  - Drug dependence [None]
  - Alopecia [None]
  - Blood test abnormal [None]
  - Hepatic function abnormal [None]
  - Weight decreased [None]

NARRATIVE: CASE EVENT DATE: 20190601
